FAERS Safety Report 18013591 (Version 1)
Quarter: 2020Q3

REPORT INFORMATION
  Report Type: Report from Study
  Country: KR (occurrence: KR)
  Receive Date: 20200713
  Receipt Date: 20200713
  Transmission Date: 20201103
  Serious: Yes (Death)
  Sender: FDA-Public Use
  Company Number: KR-MYLANLABS-2018M1080718

PATIENT
  Sex: Male
  Weight: 48.95 kg

DRUGS (2)
  1. ETOPOSIDE. [Suspect]
     Active Substance: ETOPOSIDE
     Indication: LYMPHOMA
     Dosage: 1202 MILLIGRAM, QD
     Route: 042
     Dates: start: 20130401, end: 20130403
  2. CYCLOPHOSPHAMIDE. [Suspect]
     Active Substance: CYCLOPHOSPHAMIDE
     Indication: LYMPHOMA
     Dosage: 2254 MILLIGRAM, QD
     Route: 042
     Dates: start: 20130404, end: 20130407

REACTIONS (1)
  - Septic shock [Fatal]
